FAERS Safety Report 16109778 (Version 1)
Quarter: 2019Q1

REPORT INFORMATION
  Report Type: Spontaneous
  Country: US (occurrence: US)
  Receive Date: 20190325
  Receipt Date: 20190325
  Transmission Date: 20190418
  Serious: No
  Sender: FDA-Public Use
  Company Number: US-009507513-1903USA007764

PATIENT
  Sex: Female

DRUGS (2)
  1. GANIRELIX ACETATE INJECTION [Suspect]
     Active Substance: GANIRELIX ACETATE
     Indication: INFERTILITY FEMALE
     Dosage: STRENGTH: 250 MCG/ 0.5 ML
     Route: 058
     Dates: start: 20171115
  2. LUPRON [Suspect]
     Active Substance: LEUPROLIDE ACETATE
     Dosage: 2 WEEK KIT

REACTIONS (4)
  - Insomnia [Unknown]
  - Vulvovaginal swelling [Unknown]
  - Vulvovaginal dryness [Unknown]
  - Constipation [Unknown]
